FAERS Safety Report 6962530-8 (Version None)
Quarter: 2010Q3

REPORT INFORMATION
  Report Type: 
  Country: None (occurrence: None)
  Receive Date: 20100902
  Receipt Date: 20100827
  Transmission Date: 20110219
  Serious: Yes (Hospitalization)
  Sender: FDA-Public Use
  Company Number: JP-ABBOTT-10P-087-0666718-00

PATIENT
  Sex: Male
  Weight: 65 kg

DRUGS (4)
  1. KALETRA [Suspect]
     Indication: HIV INFECTION
     Dosage: 4 DOSAGE FORMS DAILY
     Route: 048
     Dates: start: 20090113
  2. COMBIVIR [Concomitant]
     Indication: HIV INFECTION
     Dosage: 2 DOSAGE FORMS DAILY
     Route: 048
     Dates: start: 20090113
  3. TENOFOVIR [Concomitant]
     Indication: HIV INFECTION
     Dosage: 300MG DAILY
     Route: 048
     Dates: start: 20090113
  4. OLOPATADINE HYDROCHLORIDE [Concomitant]
     Indication: RHINITIS ALLERGIC
     Route: 048
     Dates: start: 20080310

REACTIONS (2)
  - BRONCHITIS [None]
  - C-REACTIVE PROTEIN INCREASED [None]
